FAERS Safety Report 6792870-7 (Version None)
Quarter: 2010Q2

REPORT INFORMATION
  Report Type: 
  Country: None (occurrence: None)
  Receive Date: 20100624
  Receipt Date: 20081031
  Transmission Date: 20101027
  Serious: No
  Sender: FDA-Public Use
  Company Number: US-PFIZER INC-2008092508

PATIENT

DRUGS (1)
  1. SUTENT [Suspect]
     Route: 048

REACTIONS (2)
  - DISEASE PROGRESSION [None]
  - NEOPLASM MALIGNANT [None]
